FAERS Safety Report 4690518-9 (Version None)
Quarter: 2005Q2

REPORT INFORMATION
  Report Type: 
  Country: None (occurrence: None)
  Receive Date: 20050615
  Receipt Date: 20050309
  Transmission Date: 20051028
  Serious: Yes (Hospitalization)
  Sender: FDA-Public Use
  Company Number: US-MERCK-0503USA01998

PATIENT
  Age: 75 Year
  Sex: Male
  Weight: 77 kg

DRUGS (12)
  1. BACITRACIN [Concomitant]
     Route: 047
  2. VIOXX [Suspect]
     Indication: ARTHRITIS
     Route: 048
     Dates: start: 20000321, end: 20040411
  3. MICRONASE [Concomitant]
     Route: 065
  4. BETAMETHASONE [Concomitant]
     Route: 065
  5. CILOXAN [Concomitant]
     Route: 047
  6. ERYTHROMYCIN [Concomitant]
     Route: 065
  7. TOBRADEX [Concomitant]
     Route: 047
  8. PREDNISOLONE [Concomitant]
     Route: 047
  9. OCUFLOX [Concomitant]
     Route: 047
  10. SYNTHROID [Concomitant]
     Route: 065
  11. PROTONIX [Concomitant]
     Route: 065
  12. FERREX [Concomitant]
     Route: 065

REACTIONS (11)
  - ACUTE MYOCARDIAL INFARCTION [None]
  - ANXIETY [None]
  - CHOLELITHIASIS [None]
  - CORONARY ARTERY DISEASE [None]
  - FALL [None]
  - GAIT DISTURBANCE [None]
  - HIP FRACTURE [None]
  - ILEUS [None]
  - PHIMOSIS [None]
  - RENAL ATROPHY [None]
  - RENAL MASS [None]
